FAERS Safety Report 8302760-6 (Version None)
Quarter: 2012Q2

REPORT INFORMATION
  Report Type: 
  Country: None (occurrence: None)
  Receive Date: 20120420
  Receipt Date: 20110414
  Transmission Date: 20120825
  Serious: No
  Sender: FDA-Public Use
  Company Number: US-PFIZER INC-K201100478

PATIENT
  Age: 58 Year
  Sex: Male
  Weight: 75.283 kg

DRUGS (12)
  1. CALCIUM [Concomitant]
     Dosage: 4 MG, 1X/DAY
  2. ASCORBIC ACID [Concomitant]
     Dosage: 2 MG, 1X/DAY
  3. ZYRTEC [Concomitant]
     Dosage: 45 MG, 1X/DAY
  4. LOVASTATIN [Concomitant]
     Dosage: 40 MG, UNK
  5. MULTI-VITAMIN [Concomitant]
     Dosage: 2 TABS, QD
  6. AVINZA [Suspect]
     Indication: ARTHRITIS
     Dosage: 30 MG, 1X/DAY
     Route: 048
     Dates: start: 20010101
  7. AVINZA [Suspect]
     Dosage: 30 MG, BID (APPROX. 10 DAYS PER MONTH)
     Route: 048
     Dates: end: 20110301
  8. METOPROLOL [Concomitant]
     Dosage: 25 MG, BID (UP TO 75MG DAILY)
  9. NITROGLYCERIN [Concomitant]
     Dosage: UNK, PRN
  10. AVINZA [Suspect]
     Dosage: 60 MG, 1X/DAY
     Route: 048
     Dates: start: 20110301
  11. NORCO [Concomitant]
     Dosage: UNK
  12. PROTONIX [Concomitant]
     Dosage: 80 MG, 1X/DAY

REACTIONS (1)
  - PAIN [None]
